FAERS Safety Report 15190235 (Version 2)
Quarter: 2018Q3

REPORT INFORMATION
  Report Type: Spontaneous
  Country: AU (occurrence: AU)
  Receive Date: 20180724
  Receipt Date: 20180827
  Transmission Date: 20181010
  Serious: Yes (Death, Hospitalization, Other)
  Sender: FDA-Public Use
  Company Number: AU-ACTELION-A-CH2018-175557

PATIENT
  Age: 51 Year
  Sex: Male
  Weight: 66 kg

DRUGS (1)
  1. VELETRI [Suspect]
     Active Substance: EPOPROSTENOL
     Indication: PULMONARY ARTERIAL HYPERTENSION
     Route: 042

REACTIONS (10)
  - Haemorrhage [Unknown]
  - Respiratory gas exchange disorder [Unknown]
  - Surgery [Unknown]
  - Cerebral infarction [Fatal]
  - Brain death [Fatal]
  - Lung transplant [Unknown]
  - Mydriasis [Unknown]
  - Brain herniation [Fatal]
  - Hypotension [Unknown]
  - Cerebrovascular accident [Fatal]

NARRATIVE: CASE EVENT DATE: 201806
